FAERS Safety Report 18532350 (Version 1)
Quarter: 2020Q4

REPORT INFORMATION
  Report Type: Spontaneous
  Country: GB (occurrence: GB)
  Receive Date: 20201123
  Receipt Date: 20201123
  Transmission Date: 20210114
  Serious: Yes (Other)
  Sender: FDA-Public Use
  Company Number: GB-AUROBINDO-AUR-APL-2020-057024

PATIENT
  Age: 74 Year
  Sex: Female

DRUGS (10)
  1. CAPECITABINE. [Suspect]
     Active Substance: CAPECITABINE
     Indication: HER2 POSITIVE BREAST CANCER
     Dosage: 500 MILLIGRAM
     Route: 048
     Dates: start: 20180227, end: 20180731
  2. ANASTROZOLE. [Suspect]
     Active Substance: ANASTROZOLE
     Indication: HER2 POSITIVE BREAST CANCER
     Dosage: 1 MILLIGRAM, ONCE A DAY
     Route: 048
  3. TRASTUZUMAB. [Suspect]
     Active Substance: TRASTUZUMAB
     Indication: HER2 POSITIVE BREAST CANCER
     Dosage: 600 MILLIGRAM, 3 WEEK
     Route: 058
     Dates: start: 20161013, end: 20180130
  4. TRASTUZUMAB EMTANSINE [Suspect]
     Active Substance: ADO-TRASTUZUMAB EMTANSINE
     Indication: HER2 POSITIVE BREAST CANCER
     Dosage: 260 MILLIGRAM, 3 WEEK
     Route: 042
     Dates: start: 20200625, end: 20200827
  5. PACLITAXEL. [Suspect]
     Active Substance: PACLITAXEL
     Dosage: 120 MILLIGRAM
     Route: 042
     Dates: start: 20181108, end: 20190228
  6. TRASTUZUMAB EMTANSINE [Suspect]
     Active Substance: ADO-TRASTUZUMAB EMTANSINE
     Dosage: 220 MILLIGRAM, 3 WEEK
     Route: 042
     Dates: start: 20201001
  7. TRASTUZUMAB. [Suspect]
     Active Substance: TRASTUZUMAB
     Dosage: 600 MILLIGRAM, 3 WEEK
     Route: 058
     Dates: start: 20180718, end: 20200602
  8. PACLITAXEL. [Suspect]
     Active Substance: PACLITAXEL
     Indication: HER2 POSITIVE BREAST CANCER
     Dosage: 162 MILLIGRAM
     Route: 042
     Dates: start: 20180921, end: 20181025
  9. EXEMESTANE. [Suspect]
     Active Substance: EXEMESTANE
     Indication: HER2 POSITIVE BREAST CANCER
     Dosage: 25 MILLIGRAM, ONCE A DAY
     Route: 048
     Dates: start: 20161122
  10. NERATINIB [Suspect]
     Active Substance: NERATINIB
     Indication: HER2 POSITIVE BREAST CANCER
     Dosage: 240 MILLIGRAM, ONCE A DAY
     Route: 048
     Dates: start: 20180226, end: 20180227

REACTIONS (1)
  - Neuropathy peripheral [Recovering/Resolving]

NARRATIVE: CASE EVENT DATE: 20200714
